FAERS Safety Report 5676140-6 (Version None)
Quarter: 2008Q1

REPORT INFORMATION
  Report Type: 
  Country: None (occurrence: None)
  Receive Date: 20080321
  Receipt Date: 20070625
  Transmission Date: 20080703
  Serious: No
  Sender: FDA-Public Use
  Company Number: US-BRISTOL-MYERS SQUIBB COMPANY-13826979

PATIENT
  Sex: Female

DRUGS (2)
  1. MYCOSTATIN [Suspect]
     Indication: RASH
  2. DIFLUCAN [Suspect]
     Indication: RASH

REACTIONS (1)
  - DRUG INEFFECTIVE [None]
